FAERS Safety Report 17318441 (Version 17)
Quarter: 2023Q1

REPORT INFORMATION
  Report Type: Report from Study
  Country: CA (occurrence: CA)
  Receive Date: 20200124
  Receipt Date: 20230328
  Transmission Date: 20230418
  Serious: Yes (Hospitalization, Other)
  Sender: FDA-Public Use
  Company Number: PHHY2019CA102821

PATIENT
  Age: 49 Year
  Sex: Female
  Weight: 87 kg

DRUGS (33)
  1. XOLAIR [Suspect]
     Active Substance: OMALIZUMAB
     Indication: Chronic spontaneous urticaria
     Dosage: 300 MG, EVERY 4 WEEKS
     Route: 058
     Dates: start: 20190730
  2. XOLAIR [Suspect]
     Active Substance: OMALIZUMAB
     Indication: Asthma
     Dosage: 300 MG, EVERY 4 WEEKS
     Route: 058
     Dates: start: 20190826
  3. XOLAIR [Suspect]
     Active Substance: OMALIZUMAB
     Dosage: 300 MG, EVERY 4 WEEKS
     Route: 058
     Dates: start: 20190924
  4. XOLAIR [Suspect]
     Active Substance: OMALIZUMAB
     Dosage: 300 MG, EVERY 4 WEEKS
     Route: 058
     Dates: start: 201910
  5. XOLAIR [Suspect]
     Active Substance: OMALIZUMAB
     Dosage: 300 MG, EVERY 4 WEEKS
     Route: 058
     Dates: start: 20200304
  6. XOLAIR [Suspect]
     Active Substance: OMALIZUMAB
     Dosage: 300 MG, EVERY 4 WEEKS
     Route: 058
     Dates: start: 20200402
  7. XOLAIR [Suspect]
     Active Substance: OMALIZUMAB
     Dosage: 300 MG, EVERY 4 WEEKS
     Route: 058
     Dates: start: 20200430
  8. XOLAIR [Suspect]
     Active Substance: OMALIZUMAB
     Dosage: 150 MG, EVERY 4 WEEKS
     Route: 058
  9. XOLAIR [Suspect]
     Active Substance: OMALIZUMAB
     Dosage: 150 MG, QMO
     Route: 058
  10. XOLAIR [Suspect]
     Active Substance: OMALIZUMAB
     Dosage: 150 MG, ONCE EVERY 4 WEEKS
     Route: 065
  11. CYCLOSPORINE [Suspect]
     Active Substance: CYCLOSPORINE
     Indication: Chronic spontaneous urticaria
     Dosage: 50 MG, QD
     Route: 048
     Dates: start: 201201
  12. CYCLOSPORINE [Suspect]
     Active Substance: CYCLOSPORINE
     Dosage: 300 MG, BID
     Route: 065
  13. CYCLOSPORINE [Suspect]
     Active Substance: CYCLOSPORINE
     Dosage: 150 MG, BID
     Route: 065
  14. CETIRIZINE HYDROCHLORIDE [Suspect]
     Active Substance: CETIRIZINE HYDROCHLORIDE
     Indication: Product used for unknown indication
     Dosage: UNK
     Route: 065
     Dates: start: 2011
  15. CHLORASEPTIC SORE THROAT [Suspect]
     Active Substance: PHENOL
     Indication: Product used for unknown indication
     Dosage: UNK
     Route: 065
  16. SYMBICORT [Suspect]
     Active Substance: BUDESONIDE\FORMOTEROL FUMARATE DIHYDRATE
     Indication: Product used for unknown indication
     Dosage: 1 DOSAGE FORM, BID (100 UG)
     Dates: start: 201805
  17. SYMBICORT [Suspect]
     Active Substance: BUDESONIDE\FORMOTEROL FUMARATE DIHYDRATE
     Dosage: 200 UG
     Route: 065
  18. VENTOLIN [Suspect]
     Active Substance: ALBUTEROL SULFATE
     Indication: Product used for unknown indication
     Dosage: 100 UG, PRN
     Route: 065
  19. VENTOLIN [Suspect]
     Active Substance: ALBUTEROL SULFATE
     Dosage: 100 UG, PRN (3 PUFFS)
     Route: 065
  20. BENADRYL [Suspect]
     Active Substance: DIPHENHYDRAMINE HYDROCHLORIDE
     Indication: Product used for unknown indication
     Dosage: 1 DOSAGE FORM, BID
     Route: 048
     Dates: start: 201103
  21. BENADRYL [Suspect]
     Active Substance: DIPHENHYDRAMINE HYDROCHLORIDE
     Dosage: 1 DOSAGE FORM, BID
     Route: 048
     Dates: start: 2012
  22. BENADRYL [Suspect]
     Active Substance: DIPHENHYDRAMINE HYDROCHLORIDE
     Dosage: 1 DOSAGE FORM, QID
     Route: 065
  23. CANDESARTAN [Suspect]
     Active Substance: CANDESARTAN
     Indication: Product used for unknown indication
     Dosage: 4 MG, BID
     Route: 065
  24. PERCOCET [Suspect]
     Active Substance: ACETAMINOPHEN\OXYCODONE HYDROCHLORIDE
     Indication: Product used for unknown indication
     Dosage: UNK
     Route: 065
  25. PREMARIN [Suspect]
     Active Substance: ESTROGENS, CONJUGATED
     Indication: Product used for unknown indication
     Dosage: UNK
     Route: 065
  26. SINGULAIR [Concomitant]
     Active Substance: MONTELUKAST SODIUM
     Indication: Hypersensitivity
     Dosage: 10 MG, QD
     Route: 065
     Dates: start: 2012
  27. CLARITIN [Concomitant]
     Active Substance: LORATADINE
     Indication: Product used for unknown indication
     Dosage: 10 MG, UNK
     Route: 065
     Dates: start: 2012
  28. PREDNISONE [Concomitant]
     Active Substance: PREDNISONE
     Indication: Product used for unknown indication
     Dosage: 50 MG, PRN
     Route: 065
     Dates: start: 2012
  29. REACTINE [Concomitant]
     Indication: Product used for unknown indication
     Dosage: 20 MG, BID
     Route: 065
     Dates: start: 2012
  30. PERCOCET [Concomitant]
     Active Substance: ACETAMINOPHEN\OXYCODONE HYDROCHLORIDE
     Indication: Product used for unknown indication
     Dosage: 3 DOSAGE FORM, QD
     Route: 048
     Dates: start: 2008
  31. PREMARIN [Concomitant]
     Active Substance: ESTROGENS, CONJUGATED
     Indication: Product used for unknown indication
     Dosage: 1 DOSAGE FORM, QD
     Route: 048
     Dates: start: 1998
  32. ALBUTEROL [Concomitant]
     Active Substance: ALBUTEROL
     Indication: Product used for unknown indication
     Dosage: 1 DOSAGE FORM, TID
     Dates: start: 201805
  33. BECLOMETHASONE [Concomitant]
     Active Substance: BECLOMETHASONE
     Indication: Product used for unknown indication
     Dosage: 1 DOSAGE FORM, BID
     Dates: start: 201805

REACTIONS (63)
  - Angioedema [Unknown]
  - Urticaria [Not Recovered/Not Resolved]
  - Urticaria thermal [Unknown]
  - Pruritus [Unknown]
  - Urticaria pressure [Unknown]
  - Brain oedema [Unknown]
  - Intracranial pressure increased [Unknown]
  - Blindness [Unknown]
  - Hypertension [Unknown]
  - Blood pressure increased [Not Recovered/Not Resolved]
  - Feeling abnormal [Unknown]
  - Cardiac disorder [Unknown]
  - Dyspnoea [Unknown]
  - Swelling [Unknown]
  - Illness [Unknown]
  - Pain [Unknown]
  - Malaise [Unknown]
  - Arthritis [Unknown]
  - Cardiomegaly [Unknown]
  - Kidney enlargement [Unknown]
  - Aneurysm [Unknown]
  - Gastritis [Unknown]
  - Peripheral swelling [Unknown]
  - Renal disorder [Unknown]
  - Joint swelling [Unknown]
  - Arthralgia [Unknown]
  - Injection site scab [Not Recovered/Not Resolved]
  - Diarrhoea [Recovering/Resolving]
  - Vomiting [Recovering/Resolving]
  - Pyrexia [Recovering/Resolving]
  - Asthenia [Unknown]
  - Migraine [Unknown]
  - Musculoskeletal discomfort [Unknown]
  - Migraine without aura [Unknown]
  - Eye swelling [Unknown]
  - Chills [Recovering/Resolving]
  - Lung disorder [Recovered/Resolved]
  - Oxygen saturation decreased [Unknown]
  - Drug hypersensitivity [Unknown]
  - Streptococcal infection [Unknown]
  - Temperature intolerance [Unknown]
  - Bone pain [Unknown]
  - Impaired healing [Not Recovered/Not Resolved]
  - Fatigue [Unknown]
  - Cough [Unknown]
  - Weight increased [Unknown]
  - Pain in extremity [Unknown]
  - Stab wound [Unknown]
  - Erythema [Unknown]
  - Inflammation [Unknown]
  - Arthropod bite [Not Recovered/Not Resolved]
  - Nausea [Unknown]
  - Symptom recurrence [Unknown]
  - Chronic spontaneous urticaria [Unknown]
  - Condition aggravated [Unknown]
  - Myalgia [Unknown]
  - Headache [Unknown]
  - Incorrect dose administered [Unknown]
  - Wrong technique in product usage process [Unknown]
  - Product use in unapproved indication [Unknown]
  - Product prescribing error [Unknown]
  - Therapeutic response decreased [Unknown]
  - Drug ineffective [Unknown]

NARRATIVE: CASE EVENT DATE: 20120101
